FAERS Safety Report 15018126 (Version 4)
Quarter: 2018Q4

REPORT INFORMATION
  Report Type: Report from Study
  Country: CO (occurrence: CO)
  Receive Date: 20180615
  Receipt Date: 20181005
  Transmission Date: 20190204
  Serious: Yes (Other)
  Sender: FDA-Public Use
  Company Number: CO-SA-2017SA212929

PATIENT
  Age: 43 Year
  Sex: Female

DRUGS (1)
  1. ALEMTUZUMAB [Suspect]
     Active Substance: ALEMTUZUMAB
     Indication: MULTIPLE SCLEROSIS
     Dosage: UNK UNK,QD
     Route: 041
     Dates: start: 20170925, end: 20170929

REACTIONS (13)
  - Bilirubin urine present [Recovered/Resolved]
  - Red blood cells urine positive [Recovered/Resolved]
  - White blood cell count decreased [Recovered/Resolved]
  - Lymphocyte count decreased [Recovered/Resolved]
  - Neutrophil percentage increased [Recovered/Resolved]
  - Urinary tract infection bacterial [Recovered/Resolved]
  - Haematuria [Recovered/Resolved]
  - Lymphocyte percentage decreased [Recovered/Resolved]
  - Bacterial test positive [Recovered/Resolved]
  - Urobilinogen urine increased [Recovered/Resolved]
  - Blood thyroid stimulating hormone increased [Recovered/Resolved]
  - Nitrite urine present [Recovered/Resolved]
  - White blood cells urine [Recovered/Resolved]

NARRATIVE: CASE EVENT DATE: 20171028
